FAERS Safety Report 23366996 (Version 1)
Quarter: 2024Q1

REPORT INFORMATION
  Report Type: Spontaneous
  Country: US (occurrence: None)
  Receive Date: 20240104
  Receipt Date: 20240104
  Transmission Date: 20240410
  Serious: Yes (Hospitalization)
  Sender: FDA-Public Use
  Company Number: None

PATIENT
  Age: 82 Year
  Sex: Female
  Weight: 70.2 kg

DRUGS (2)
  1. FASLODEX [Suspect]
     Active Substance: FULVESTRANT
  2. PALBOCICLIB [Concomitant]
     Active Substance: PALBOCICLIB

REACTIONS (2)
  - Cellulitis [None]
  - Spinal stenosis [None]

NARRATIVE: CASE EVENT DATE: 20240102
